FAERS Safety Report 5377202-3 (Version None)
Quarter: 2007Q2

REPORT INFORMATION
  Report Type: 
  Country: None (occurrence: None)
  Receive Date: 20070629
  Receipt Date: 20070629
  Transmission Date: 20071010
  Serious: Yes (Other)
  Sender: FDA-Public Use
  Company Number: None

PATIENT
  Sex: Male

DRUGS (12)
  1. REVLIMID [Suspect]
     Indication: MULTIPLE MYELOMA
     Dosage: 15MG 10MG DAILY 21D/28D PO
     Route: 048
  2. REGLAN [Concomitant]
  3. ACYCLOVIR [Concomitant]
  4. FENTANYL [Concomitant]
  5. VFEND [Concomitant]
  6. NOVOLIN 50/50 [Concomitant]
  7. NEULASTA [Concomitant]
  8. TACROLIMUS [Concomitant]
  9. SEPTRA DS [Concomitant]
  10. PENICILLIN [Concomitant]
  11. AMBIEN [Concomitant]
  12. PROTONIX [Concomitant]

REACTIONS (2)
  - LIVER ABSCESS [None]
  - NEUTROPENIA [None]
